FAERS Safety Report 25448064 (Version 1)
Quarter: 2025Q2

REPORT INFORMATION
  Report Type: Report from Study
  Country: US (occurrence: US)
  Receive Date: 20250617
  Receipt Date: 20250617
  Transmission Date: 20250716
  Serious: Yes (Hospitalization)
  Sender: ASTELLAS
  Company Number: US-ASTELLAS-2025-AER-032552

PATIENT
  Age: 65 Year
  Sex: Female

DRUGS (2)
  1. GILTERITINIB [Suspect]
     Active Substance: GILTERITINIB
     Indication: Acute myeloid leukaemia
     Route: 048
     Dates: start: 202409
  2. GILTERITINIB [Suspect]
     Active Substance: GILTERITINIB
     Indication: Fallopian tube cancer

REACTIONS (2)
  - White blood cell count decreased [Unknown]
  - Off label use [Unknown]

NARRATIVE: CASE EVENT DATE: 20240901
